FAERS Safety Report 8317658-7 (Version None)
Quarter: 2012Q2

REPORT INFORMATION
  Report Type: 
  Country: None (occurrence: None)
  Receive Date: 20120427
  Receipt Date: 20120416
  Transmission Date: 20120825
  Serious: Yes (Life-Threatening, Hospitalization)
  Sender: FDA-Public Use
  Company Number: FR-BRISTOL-MYERS SQUIBB COMPANY-16538688

PATIENT
  Age: 43 Year
  Sex: Male

DRUGS (6)
  1. RAMIPRIL [Concomitant]
  2. ATORVASTATIN [Concomitant]
  3. APIDRA [Concomitant]
  4. NEXIUM [Concomitant]
  5. GLUCOPHAGE [Suspect]
     Indication: DIABETES MELLITUS
     Route: 048
     Dates: start: 20110901, end: 20110901
  6. LANTUS [Concomitant]

REACTIONS (2)
  - LACTIC ACIDOSIS [None]
  - SEPSIS [None]
